FAERS Safety Report 6882935-3 (Version None)
Quarter: 2010Q3

REPORT INFORMATION
  Report Type: 
  Country: None (occurrence: None)
  Receive Date: 20100729
  Receipt Date: 20100728
  Transmission Date: 20110219
  Serious: Yes (Death)
  Sender: FDA-Public Use
  Company Number: CO-ROCHE-717773

PATIENT
  Sex: Female

DRUGS (2)
  1. AVASTIN [Suspect]
     Indication: COLORECTAL CANCER
     Route: 042
     Dates: start: 20091014, end: 20100423
  2. MORPHINE [Concomitant]
     Indication: PAIN
     Dosage: FREQUENCY: DAILY.
     Route: 048

REACTIONS (1)
  - DISEASE PROGRESSION [None]
